FAERS Safety Report 6667822-8 (Version None)
Quarter: 2010Q2

REPORT INFORMATION
  Report Type: 
  Country: None (occurrence: None)
  Receive Date: 20100401
  Receipt Date: 20100316
  Transmission Date: 20101027
  Serious: Yes (Hospitalization, Other)
  Sender: FDA-Public Use
  Company Number: 1-21940233

PATIENT
  Age: 82 Year
  Sex: Male

DRUGS (1)
  1. WARFARIN SODIUM [Suspect]
     Indication: THROMBOSIS PROPHYLAXIS
     Dosage: ORAL
     Route: 048

REACTIONS (5)
  - EXTERNAL EAR DISORDER [None]
  - INDURATION [None]
  - NO THERAPEUTIC RESPONSE [None]
  - SKIN NECROSIS [None]
  - SWELLING [None]
